FAERS Safety Report 5952159-2 (Version None)
Quarter: 2008Q4

REPORT INFORMATION
  Report Type: 
  Country: None (occurrence: None)
  Receive Date: 20081113
  Receipt Date: 20080804
  Transmission Date: 20090506
  Serious: Yes (Hospitalization)
  Sender: FDA-Public Use
  Company Number: A0739227A

PATIENT
  Age: 58 Year
  Sex: Female
  Weight: 42.3 kg

DRUGS (10)
  1. COREG [Suspect]
     Dosage: 25MG TWICE PER DAY
     Route: 048
     Dates: start: 20030101
  2. CARVEDILOL [Suspect]
     Route: 048
  3. XANAX [Concomitant]
  4. LIPITOR [Concomitant]
  5. LASIX [Concomitant]
  6. VALTREX [Concomitant]
  7. ATIVAN [Concomitant]
  8. ASPIRIN [Concomitant]
  9. VITAMIN B COMPLEX CAP [Concomitant]
  10. NEXIUM [Concomitant]

REACTIONS (7)
  - BLOOD PRESSURE INCREASED [None]
  - DIZZINESS [None]
  - DRUG INEFFECTIVE [None]
  - FATIGUE [None]
  - HYPOTENSION [None]
  - INTESTINAL ISCHAEMIA [None]
  - LARGE INTESTINAL HAEMORRHAGE [None]
